FAERS Safety Report 13088378 (Version 1)
Quarter: 2017Q1

REPORT INFORMATION
  Report Type: Report from Study
  Country: CA (occurrence: CA)
  Receive Date: 20170105
  Receipt Date: 20170105
  Transmission Date: 20170428
  Serious: Yes (Other)
  Sender: FDA-Public Use
  Company Number: CA-JNJFOC-20170101168

PATIENT
  Age: 60 Year
  Sex: Male
  Weight: 103 kg

DRUGS (1)
  1. STELARA [Suspect]
     Active Substance: USTEKINUMAB
     Indication: CROHN^S DISEASE
     Route: 058
     Dates: start: 20161203

REACTIONS (1)
  - Perineal abscess [Unknown]

NARRATIVE: CASE EVENT DATE: 20161229
